FAERS Safety Report 4526413-5 (Version None)
Quarter: 2004Q4

REPORT INFORMATION
  Report Type: 
  Country: None (occurrence: None)
  Receive Date: 20041214
  Receipt Date: 20041126
  Transmission Date: 20050328
  Serious: Yes (Hospitalization)
  Sender: FDA-Public Use
  Company Number: FR-ROCHE-387359

PATIENT
  Age: 54 Year
  Sex: Female
  Weight: 70 kg

DRUGS (6)
  1. RIVOTRIL [Suspect]
     Indication: DRUG USE FOR UNKNOWN INDICATION
     Dosage: DOSE FORM: INJECTABLE SOLUTION DOSAGE: 1/3 AMPULE
     Route: 042
     Dates: start: 20040929, end: 20040929
  2. SUPRANE [Suspect]
     Indication: DRUG USE FOR UNKNOWN INDICATION
     Route: 042
     Dates: start: 20040927, end: 20040927
  3. NIMBEX [Suspect]
     Indication: DRUG USE FOR UNKNOWN INDICATION
     Dosage: FORM: INJECTABLE SOLUTION
     Route: 042
     Dates: start: 20040927, end: 20040927
  4. CELOCURINE [Suspect]
     Indication: DRUG USE FOR UNKNOWN INDICATION
     Route: 042
     Dates: start: 20040927, end: 20040927
  5. PENTOTHAL [Suspect]
     Indication: DRUG USE FOR UNKNOWN INDICATION
     Route: 042
     Dates: start: 20040927, end: 20040927
  6. DEPAKENE [Concomitant]
     Dosage: 75MG OVER 5 MINUTES THEN 50MG/HOUR. FORMULATION REPORTED AS LYOPHILISED.
     Route: 042
     Dates: start: 20040929, end: 20040930

REACTIONS (8)
  - ALANINE AMINOTRANSFERASE INCREASED [None]
  - ASPARTATE AMINOTRANSFERASE INCREASED [None]
  - CHOLESTASIS [None]
  - CONVULSION [None]
  - HEPATIC ENCEPHALOPATHY [None]
  - HEPATITIS [None]
  - PROTHROMBIN TIME RATIO DECREASED [None]
  - RESPIRATORY DISTRESS [None]
